FAERS Safety Report 15255257 (Version 1)
Quarter: 2018Q3

REPORT INFORMATION
  Report Type: Spontaneous
  Country: US (occurrence: US)
  Receive Date: 20180808
  Receipt Date: 20180808
  Transmission Date: 20181010
  Serious: Yes (Other)
  Sender: FDA-Public Use
  Company Number: US-PFIZER INC-2018317038

PATIENT
  Sex: Male

DRUGS (1)
  1. ADVIL [Suspect]
     Active Substance: IBUPROFEN
     Indication: NEURALGIA
     Dosage: CONSUMED  PRODUCT FOR A WEEK AND HALF, 3X/DAY

REACTIONS (3)
  - Diabetes mellitus [Unknown]
  - Intentional product misuse [Unknown]
  - Product use complaint [Unknown]
